FAERS Safety Report 4659794-2 (Version None)
Quarter: 2005Q2

REPORT INFORMATION
  Report Type: 
  Country: None (occurrence: None)
  Receive Date: 20050510
  Receipt Date: 20050420
  Transmission Date: 20051028
  Serious: Yes (Death, Hospitalization, Other)
  Sender: FDA-Public Use
  Company Number: USA050494989

PATIENT
  Age: 33 Year
  Sex: Female

DRUGS (11)
  1. SYMBYAX [Suspect]
     Indication: INSOMNIA
     Dates: start: 20050119
  2. ZYPREXA [Suspect]
     Indication: BIPOLAR I DISORDER
     Dosage: 2. 5 MG
     Route: 048
     Dates: start: 20050222
  3. CYMBALTA [Suspect]
     Indication: DEPRESSION
     Dosage: 60 MG/1 DAY
     Dates: start: 20041214
  4. SYNTHROID [Concomitant]
  5. MACROBID [Concomitant]
  6. XANAX (ALPRAZOLAM DUM) [Concomitant]
  7. TAMIFLU [Concomitant]
  8. LEVAQUIN [Concomitant]
  9. ZYRTEC [Concomitant]
  10. FLONASE [Concomitant]
  11. TYLENOL PM [Concomitant]

REACTIONS (19)
  - ABNORMAL BEHAVIOUR [None]
  - ACIDOSIS [None]
  - AGITATION [None]
  - BLOOD GLUCOSE DECREASED [None]
  - COMA [None]
  - EAR PAIN [None]
  - EMOTIONAL DISTRESS [None]
  - FATIGUE [None]
  - FEAR [None]
  - GASTROINTESTINAL HAEMORRHAGE [None]
  - HALLUCINATION [None]
  - HEPATIC FAILURE [None]
  - HEPATIC NECROSIS [None]
  - HYPOAESTHESIA [None]
  - INFLUENZA LIKE ILLNESS [None]
  - INSOMNIA [None]
  - OVERDOSE [None]
  - PHARYNGOLARYNGEAL PAIN [None]
  - RELATIONSHIP BREAKDOWN [None]
